FAERS Safety Report 15449898 (Version 1)
Quarter: 2018Q3

REPORT INFORMATION
  Report Type: Spontaneous
  Country: US (occurrence: US)
  Receive Date: 20180926
  Receipt Date: 20180926
  Transmission Date: 20181010
  Serious: Yes (Hospitalization, Disabling, Other)
  Sender: FDA-Public Use
  Company Number: None

PATIENT
  Age: 67 Year
  Sex: Female
  Weight: 91 kg

DRUGS (6)
  1. NAFCILLIN [Suspect]
     Active Substance: NAFCILLIN\NAFCILLIN SODIUM
     Indication: STAPHYLOCOCCAL INFECTION
     Route: 040
     Dates: start: 20180915, end: 20180921
  2. FENTANYL 12.5MCG [Concomitant]
     Dates: start: 20180915, end: 20180921
  3. ACETAMINOPHEN 1000MG [Concomitant]
     Dates: start: 20180915, end: 20180920
  4. BICITRA [Concomitant]
     Active Substance: CITRIC ACID, 1-STEARYL ESTER\SODIUM CITRATE
     Dates: start: 20180916, end: 20180921
  5. OXYCODONE 5MG [Concomitant]
     Active Substance: OXYCODONE
     Dates: start: 20180912, end: 20180920
  6. PROPOFOL 10MG/ML [Concomitant]
     Active Substance: PROPOFOL
     Dates: start: 20180914, end: 20180918

REACTIONS (1)
  - Hyperbilirubinaemia [None]

NARRATIVE: CASE EVENT DATE: 20180915
